FAERS Safety Report 16312720 (Version 2)
Quarter: 2019Q2

REPORT INFORMATION
  Report Type: Spontaneous
  Country: US (occurrence: US)
  Receive Date: 20190515
  Receipt Date: 20190615
  Transmission Date: 20190711
  Serious: Yes (Other)
  Sender: FDA-Public Use
  Company Number: US-MACLEODS PHARMACEUTICALS US LTD-MAC2019021248

PATIENT

DRUGS (1)
  1. SILDENAFIL. [Suspect]
     Active Substance: SILDENAFIL
     Indication: PRODUCT USED FOR UNKNOWN INDICATION
     Dosage: 750 MILLIGRAM,CONSUMED ENTIRE 30-ML BOTTLE (TOTAL DOSE,750 MG, ALMOST 10 TIMES THE RECOMMENDED DOSE
     Route: 048

REACTIONS (5)
  - Photophobia [Recovering/Resolving]
  - Visual field defect [Unknown]
  - Intentional overdose [Not Recovered/Not Resolved]
  - Retinal toxicity [Not Recovered/Not Resolved]
  - Night blindness [Recovering/Resolving]
